FAERS Safety Report 25857116 (Version 1)
Quarter: 2025Q3

REPORT INFORMATION
  Report Type: Spontaneous
  Country: US (occurrence: US)
  Receive Date: 20250929
  Receipt Date: 20250929
  Transmission Date: 20251020
  Serious: No
  Sender: ROCHE
  Company Number: US-ROCHE-10000392916

PATIENT
  Age: 43 Year
  Sex: Male

DRUGS (1)
  1. ALECENSA [Suspect]
     Active Substance: ALECTINIB HYDROCHLORIDE
     Indication: Multiple sclerosis
     Route: 048
     Dates: start: 202310

REACTIONS (4)
  - Off label use [Unknown]
  - Depression [Unknown]
  - Anxiety [Unknown]
  - Weight increased [Unknown]

NARRATIVE: CASE EVENT DATE: 20231001
